FAERS Safety Report 5067207-4 (Version None)
Quarter: 2006Q3

REPORT INFORMATION
  Report Type: 
  Country: None (occurrence: None)
  Receive Date: 20060726
  Receipt Date: 20060714
  Transmission Date: 20061208
  Serious: Yes (Other)
  Sender: FDA-Public Use
  Company Number: GBWYE231218JUL06

PATIENT
  Age: 35 Year
  Sex: Female

DRUGS (2)
  1. EFFEXOR [Suspect]
     Indication: DEPRESSION
     Dosage: ORAL; 37.5MG ORAL
     Route: 048
     Dates: end: 20060515
  2. EFFEXOR [Suspect]
     Indication: DEPRESSION
     Dosage: ORAL; 37.5MG ORAL
     Route: 048
     Dates: start: 20030605

REACTIONS (4)
  - CENTRAL NERVOUS SYSTEM STIMULATION [None]
  - DRUG WITHDRAWAL SYNDROME [None]
  - HYPERVIGILANCE [None]
  - NAUSEA [None]
